FAERS Safety Report 9151265 (Version 1)
Quarter: 2013Q1

REPORT INFORMATION
  Report Type: Report from Study
  Country: CA (occurrence: CA)
  Receive Date: 20130308
  Receipt Date: 20130308
  Transmission Date: 20140127
  Serious: Yes (Other)
  Sender: FDA-Public Use
  Company Number: CA-ROCHE-1199428

PATIENT
  Sex: Female
  Weight: 61.3 kg

DRUGS (7)
  1. ACTEMRA [Suspect]
     Indication: RHEUMATOID ARTHRITIS
     Route: 042
     Dates: start: 20120403, end: 20130115
  2. METHOTREXATE [Concomitant]
  3. CELEBREX [Concomitant]
  4. VALTREX [Concomitant]
  5. FOLIC ACID [Concomitant]
  6. TYLENOL EXTRA STRENGTH [Concomitant]
  7. NASONEX [Concomitant]

REACTIONS (1)
  - Rheumatoid arthritis [Not Recovered/Not Resolved]
